FAERS Safety Report 17869542 (Version 1)
Quarter: 2020Q2

REPORT INFORMATION
  Report Type: Spontaneous
  Country: FR (occurrence: FR)
  Receive Date: 20200608
  Receipt Date: 20200608
  Transmission Date: 20200714
  Serious: Yes (Death, Hospitalization, Other)
  Sender: FDA-Public Use
  Company Number: FR-SA-2020SA113046

PATIENT

DRUGS (2)
  1. TAVANIC [Suspect]
     Active Substance: LEVOFLOXACIN
     Indication: DEVICE RELATED INFECTION
     Dosage: 1.5 DF, QD
     Route: 048
     Dates: start: 20200306, end: 20200419
  2. RIFAMPICIN [Suspect]
     Active Substance: RIFAMPIN
     Indication: DEVICE RELATED INFECTION
     Dosage: 900 MG, QD
     Route: 048
     Dates: start: 20200306, end: 20200417

REACTIONS (3)
  - Drug reaction with eosinophilia and systemic symptoms [Fatal]
  - Rash macular [Recovering/Resolving]
  - Purpura [Recovered/Resolved]

NARRATIVE: CASE EVENT DATE: 202004
